FAERS Safety Report 10469270 (Version 1)
Quarter: 2014Q3

REPORT INFORMATION
  Report Type: Spontaneous
  Country: US (occurrence: None)
  Receive Date: 20140922
  Receipt Date: 20140922
  Transmission Date: 20150326
  Serious: Yes (Other)
  Sender: FDA-Public Use
  Company Number: None

PATIENT
  Age: 37 Year
  Sex: Female
  Weight: 70.76 kg

DRUGS (1)
  1. MINOXIDIL. [Suspect]
     Active Substance: MINOXIDIL
     Indication: ALOPECIA
     Dosage: 1CC TWICE DAILY APPLIED TO A SURFACE, USUALLY THE SKIN
     Dates: start: 20140808, end: 20140916

REACTIONS (2)
  - Palpitations [None]
  - Cardiac flutter [None]

NARRATIVE: CASE EVENT DATE: 20140908
